FAERS Safety Report 12908695 (Version 2)
Quarter: 2018Q4

REPORT INFORMATION
  Report Type: Spontaneous
  Country: CA (occurrence: CA)
  Receive Date: 20161103
  Receipt Date: 20181014
  Transmission Date: 20190204
  Serious: Yes (Hospitalization, Other)
  Sender: FDA-Public Use
  Company Number: CA-CANTON LABORATORIES, LLC-1059205

PATIENT
  Age: 61 Year
  Sex: Female

DRUGS (11)
  1. NAPROSYN [Suspect]
     Active Substance: NAPROXEN
     Indication: RHEUMATOID ARTHRITIS
  2. PREDNISONE. [Suspect]
     Active Substance: PREDNISONE
  3. HYDROXYCHLOROQUINE SULFATE. [Suspect]
     Active Substance: HYDROXYCHLOROQUINE SULFATE
     Route: 065
  4. ACTEMRA [Suspect]
     Active Substance: TOCILIZUMAB
  5. HUMIRA [Suspect]
     Active Substance: ADALIMUMAB
     Route: 058
  6. XELJANZ [Suspect]
     Active Substance: TOFACITINIB CITRATE
     Route: 048
     Dates: start: 20151110, end: 20151115
  7. LEFLUNOMIDE. [Suspect]
     Active Substance: LEFLUNOMIDE
  8. ORENCIA [Suspect]
     Active Substance: ABATACEPT
     Route: 042
  9. FOLIC ACID. [Concomitant]
     Active Substance: FOLIC ACID
  10. PLAQUENIL [Concomitant]
     Active Substance: HYDROXYCHLOROQUINE SULFATE
  11. ENBREL [Suspect]
     Active Substance: ETANERCEPT
     Route: 058

REACTIONS (13)
  - Fatigue [Not Recovered/Not Resolved]
  - Fall [Unknown]
  - Femur fracture [Not Recovered/Not Resolved]
  - Pain [Not Recovered/Not Resolved]
  - Limb deformity [Unknown]
  - Arthropathy [Unknown]
  - Drug ineffective [Unknown]
  - Red blood cell sedimentation rate abnormal [Unknown]
  - Fracture delayed union [Not Recovered/Not Resolved]
  - C-reactive protein abnormal [Unknown]
  - Rash [Not Recovered/Not Resolved]
  - Osteoporosis [Not Recovered/Not Resolved]
  - Synovitis [Unknown]

NARRATIVE: CASE EVENT DATE: 20151020
